FAERS Safety Report 4480738-0 (Version None)
Quarter: 2004Q4

REPORT INFORMATION
  Report Type: 
  Country: None (occurrence: None)
  Receive Date: 20041019
  Receipt Date: 20041001
  Transmission Date: 20050328
  Serious: Yes (Death)
  Sender: FDA-Public Use
  Company Number: DSA_70476_2004

PATIENT
  Age: 65 Year

DRUGS (3)
  1. METHADONE HCL [Suspect]
     Dosage: DF PO
     Route: 048
  2. DIAZEPAM [Suspect]
     Dosage: DF
  3. ALPRAZOLAM [Suspect]
     Dosage: DF

REACTIONS (3)
  - CARDIAC ARREST [None]
  - OVERDOSE [None]
  - RESPIRATORY ARREST [None]
